FAERS Safety Report 5531647-7 (Version None)
Quarter: 2007Q4

REPORT INFORMATION
  Report Type: 
  Country: None (occurrence: None)
  Receive Date: 20071203
  Receipt Date: 20071121
  Transmission Date: 20080405
  Serious: Yes (Hospitalization)
  Sender: FDA-Public Use
  Company Number: US-AMGEN-US253327

PATIENT
  Sex: Female

DRUGS (20)
  1. ARANESP [Suspect]
     Indication: ANAEMIA OF MALIGNANT DISEASE
     Route: 058
     Dates: start: 20070918, end: 20071009
  2. LASIX [Concomitant]
     Dates: start: 20070911
  3. ATROPINE [Concomitant]
     Route: 042
     Dates: start: 20070807
  4. CARBOPLATIN [Concomitant]
     Dates: start: 20070604, end: 20070918
  5. CAMPTOSAR [Concomitant]
     Dates: start: 20070604, end: 20070918
  6. ATENOLOL [Concomitant]
     Route: 048
     Dates: start: 20020101
  7. DYAZIDE [Concomitant]
     Route: 048
     Dates: start: 20061001
  8. PREDNISONE TAB [Concomitant]
     Route: 048
     Dates: start: 20070801
  9. POTASSIUM CHLORIDE [Concomitant]
     Route: 048
     Dates: start: 20070703
  10. ALOXI [Concomitant]
     Route: 042
     Dates: start: 20070807
  11. LORTAB [Concomitant]
     Route: 048
     Dates: start: 20070924
  12. AMBIEN [Concomitant]
     Route: 048
     Dates: start: 20070924
  13. HYCAMTIN [Concomitant]
     Dates: start: 20071009
  14. RESTORIL [Concomitant]
     Route: 048
     Dates: start: 20070924
  15. OXYCOCET [Concomitant]
     Route: 048
     Dates: start: 20071002
  16. PNEUMOCOCCAL VACCINE [Concomitant]
     Route: 030
     Dates: start: 20070924
  17. ASPIRIN [Concomitant]
  18. VITAMIN CAP [Concomitant]
  19. ASCORBIC ACID [Concomitant]
     Route: 048
     Dates: start: 20070924
  20. ATROPINE SULFATE [Concomitant]
     Dates: start: 20070703

REACTIONS (2)
  - COMPRESSION FRACTURE [None]
  - PNEUMONIA [None]
